FAERS Safety Report 5835922-8 (Version None)
Quarter: 2008Q3

REPORT INFORMATION
  Report Type: 
  Country: None (occurrence: None)
  Receive Date: 20080805
  Receipt Date: 20080728
  Transmission Date: 20090109
  Serious: Yes (Hospitalization, Other)
  Sender: FDA-Public Use
  Company Number: 008-21880-08051471

PATIENT
  Age: 62 Year
  Sex: Male

DRUGS (5)
  1. REVLIMID [Suspect]
     Indication: MULTIPLE MYELOMA
     Dosage: 25 MG, DAILY,  ORAL;  10 MG, DAILY, ORAL
     Route: 048
     Dates: start: 20080409, end: 20080413
  2. REVLIMID [Suspect]
     Indication: MULTIPLE MYELOMA
     Dosage: 25 MG, DAILY,  ORAL;  10 MG, DAILY, ORAL
     Route: 048
     Dates: start: 20080508, end: 20080511
  3. DEXAMETHASONE TAB [Concomitant]
  4. PAMIDRONATE DISODIUM [Concomitant]
  5. ADRIAMYCIN PFS [Concomitant]

REACTIONS (18)
  - ABASIA [None]
  - ANAEMIA [None]
  - ATRIAL FIBRILLATION [None]
  - BLOOD URINE PRESENT [None]
  - CONSTIPATION [None]
  - DISEASE PROGRESSION [None]
  - HYPERCALCAEMIA [None]
  - LETHARGY [None]
  - MULTIPLE MYELOMA [None]
  - NEUTROPENIA [None]
  - NOCTURIA [None]
  - PANCYTOPENIA [None]
  - PNEUMONIA [None]
  - POLYDIPSIA [None]
  - POLYURIA [None]
  - RENAL FAILURE ACUTE [None]
  - TUMOUR LYSIS SYNDROME [None]
  - URINARY INCONTINENCE [None]
